FAERS Safety Report 7957628-1 (Version None)
Quarter: 2011Q4

REPORT INFORMATION
  Report Type: 
  Country: None (occurrence: None)
  Receive Date: 20111205
  Receipt Date: 20111123
  Transmission Date: 20120403
  Serious: Yes (Other)
  Sender: FDA-Public Use
  Company Number: PHHY2011MX103269

PATIENT
  Sex: Female

DRUGS (2)
  1. DIOVAN HCT [Suspect]
     Indication: HYPERTENSION
     Dosage: 1 DF, (160/12.5MG) DAILY
     Route: 048
  2. INSULIN [Concomitant]

REACTIONS (3)
  - FALL [None]
  - UPPER LIMB FRACTURE [None]
  - SYNCOPE [None]
